FAERS Safety Report 18505708 (Version 1)
Quarter: 2020Q4

REPORT INFORMATION
  Report Type: Spontaneous
  Country: JP (occurrence: JP)
  Receive Date: 20201116
  Receipt Date: 20201116
  Transmission Date: 20210114
  Serious: Yes (Other)
  Sender: FDA-Public Use
  Company Number: NVSJ2020JP011967

PATIENT
  Age: 41 Year
  Sex: Male

DRUGS (1)
  1. CICLOSPORIN [Suspect]
     Active Substance: CYCLOSPORINE
     Indication: ERYTHRODERMIC PSORIASIS
     Dosage: 3 MG/KG
     Route: 065

REACTIONS (4)
  - Glaucoma [Unknown]
  - Uveitis [Unknown]
  - Erythrodermic psoriasis [Recovering/Resolving]
  - Condition aggravated [Recovering/Resolving]
